FAERS Safety Report 11047619 (Version 3)
Quarter: 2015Q3

REPORT INFORMATION
  Report Type: Spontaneous
  Country: US (occurrence: US)
  Receive Date: 20150420
  Receipt Date: 20150721
  Transmission Date: 20151125
  Serious: Yes (Death, Hospitalization)
  Sender: FDA-Public Use
  Company Number: US-PFIZER INC-2015129660

PATIENT
  Age: 74 Year
  Sex: Male

DRUGS (1)
  1. SUTENT [Suspect]
     Active Substance: SUNITINIB MALATE
     Dosage: 50 MG, DAILY
     Dates: start: 20150120

REACTIONS (3)
  - Malaise [Unknown]
  - Neoplasm malignant [Fatal]
  - Disease progression [Fatal]
